FAERS Safety Report 9394819 (Version 1)
Quarter: 2013Q3

REPORT INFORMATION
  Report Type: Spontaneous
  Country: US (occurrence: US)
  Receive Date: 20130711
  Receipt Date: 20130711
  Transmission Date: 20140515
  Serious: Yes (Hospitalization)
  Sender: FDA-Public Use
  Company Number: US-BAYER-2013-082734

PATIENT
  Age: 39 Year
  Sex: Female
  Weight: 76.96 kg

DRUGS (10)
  1. YAZ [Suspect]
     Indication: PREMENSTRUAL SYNDROME
  2. ACYCLOVIR [ACICLOVIR] [Concomitant]
     Dosage: 400 MG, BID
     Route: 048
     Dates: start: 20110810
  3. PRILOSEC [Concomitant]
  4. NOVOLOG [Concomitant]
  5. FERROUS SULFATE [Concomitant]
  6. LABETALOL [Concomitant]
     Indication: HYPERTENSION
  7. ZESTRIL [Concomitant]
  8. COLACE [Concomitant]
  9. FLORINEF [Concomitant]
  10. VALIUM [Concomitant]

REACTIONS (4)
  - Cerebral venous thrombosis [None]
  - Cerebrovascular accident [Recovered/Resolved]
  - Cerebrovascular accident [Recovered/Resolved]
  - Cerebral infarction [None]
